FAERS Safety Report 25123120 (Version 1)
Quarter: 2025Q1

REPORT INFORMATION
  Report Type: Spontaneous
  Country: US (occurrence: US)
  Receive Date: 20250326
  Receipt Date: 20250326
  Transmission Date: 20250408
  Serious: No
  Sender: GRIFOLS
  Company Number: US-IGSA-BIG0028768

PATIENT
  Age: 59 Year
  Sex: Male
  Weight: 85.261 kg

DRUGS (1)
  1. PROLASTIN-C LIQUID [Suspect]
     Active Substance: .ALPHA.1-PROTEINASE INHIBITOR HUMAN
     Indication: Alpha-1 antitrypsin deficiency
     Dosage: 5100 MILLIGRAM, Q.WK.
     Route: 042
     Dates: start: 20240409

REACTIONS (4)
  - Blood pressure increased [Recovered/Resolved]
  - Saliva altered [Unknown]
  - Increased viscosity of bronchial secretion [Unknown]
  - Cough [Unknown]

NARRATIVE: CASE EVENT DATE: 20240401
